FAERS Safety Report 13429976 (Version 1)
Quarter: 2017Q2

REPORT INFORMATION
  Report Type: Spontaneous
  Country: US (occurrence: US)
  Receive Date: 20170411
  Receipt Date: 20170411
  Transmission Date: 20170830
  Serious: No
  Sender: FDA-Public Use
  Company Number: None

PATIENT
  Age: 34 Year
  Sex: Male
  Weight: 121.5 kg

DRUGS (2)
  1. CIPROFLOXACIN. [Suspect]
     Active Substance: CIPROFLOXACIN
     Dosage: ?          QUANTITY:1 TABLET(S);?
     Route: 048
  2. ZEGERID [Concomitant]
     Active Substance: OMEPRAZOLE\SODIUM BICARBONATE

REACTIONS (5)
  - Urticaria [None]
  - Nausea [None]
  - Limb discomfort [None]
  - Dizziness [None]
  - Toothache [None]

NARRATIVE: CASE EVENT DATE: 20170406
